FAERS Safety Report 4664585-2 (Version None)
Quarter: 2005Q2

REPORT INFORMATION
  Report Type: 
  Country: None (occurrence: None)
  Receive Date: 20050518
  Receipt Date: 20050510
  Transmission Date: 20051028
  Serious: Yes (Death)
  Sender: FDA-Public Use
  Company Number: GB-GLAXOSMITHKLINE-B0380633A

PATIENT
  Age: 57 Year
  Sex: Female
  Weight: 18 kg

DRUGS (5)
  1. AVANDIA [Suspect]
     Indication: DIABETES MELLITUS
     Dosage: 4MG UNKNOWN
     Route: 048
     Dates: start: 20040827, end: 20050313
  2. LEVOTHYROXINE SODIUM [Concomitant]
     Indication: HYPOTHYROIDISM
     Dosage: 200MCG PER DAY
     Route: 048
     Dates: start: 19980101
  3. LISINOPRIL [Concomitant]
     Indication: CARDIOVASCULAR DISORDER
     Dosage: 10MG PER DAY
     Route: 048
     Dates: start: 19970815
  4. METFORMIN [Concomitant]
     Indication: DIABETES MELLITUS
     Dosage: 1G TWICE PER DAY
     Route: 048
     Dates: start: 19980320
  5. ASPIRIN [Concomitant]
     Dosage: 75MG PER DAY
     Route: 048
     Dates: start: 19980101

REACTIONS (4)
  - BLOOD CREATINE INCREASED [None]
  - BLOOD THYROID STIMULATING HORMONE INCREASED [None]
  - CARDIAC FAILURE [None]
  - GLYCOSYLATED HAEMOGLOBIN INCREASED [None]
